FAERS Safety Report 6143563-0 (Version None)
Quarter: 2009Q2

REPORT INFORMATION
  Report Type: 
  Country: None (occurrence: None)
  Receive Date: 20090403
  Receipt Date: 20090324
  Transmission Date: 20091009
  Serious: Yes (Hospitalization)
  Sender: FDA-Public Use
  Company Number: FR-PFIZER INC-2008087209

PATIENT

DRUGS (3)
  1. ZOLOFT [Suspect]
     Dates: start: 20080601
  2. AMITRIPTYLINE [Suspect]
     Dates: start: 20080601, end: 20080801
  3. ALPRAZOLAM [Concomitant]
     Dates: start: 20080701, end: 20080801

REACTIONS (3)
  - BRONCHOSPASM [None]
  - EOSINOPHILIA [None]
  - LUNG DISORDER [None]
